FAERS Safety Report 4463128-6 (Version None)
Quarter: 2004Q3

REPORT INFORMATION
  Report Type: 
  Country: None (occurrence: None)
  Receive Date: 20040928
  Receipt Date: 20040914
  Transmission Date: 20050211
  Serious: Yes (Hospitalization)
  Sender: FDA-Public Use
  Company Number: FABR-10777

PATIENT
  Age: 38 Year
  Sex: Male
  Weight: 68.0396 kg

DRUGS (14)
  1. FABRAZYME [Suspect]
     Indication: FABRY'S DISEASE
     Dosage: 1 MG/KG Q2WKS IV
     Route: 042
     Dates: start: 20030901
  2. ZEMPLAR [Concomitant]
  3. FOSAMAX [Concomitant]
  4. VENOFER [Concomitant]
  5. SENNA [Concomitant]
  6. METHADONE HCL [Concomitant]
  7. SODIUM BICARBONATE [Concomitant]
  8. NORCO [Concomitant]
  9. RENAGEL [Concomitant]
  10. AMBIEN [Concomitant]
  11. NEURONTIN [Concomitant]
  12. LEXAPRO [Concomitant]
  13. MULTI-VITAMIN [Concomitant]
  14. MIACALCIN [Concomitant]

REACTIONS (2)
  - NEUROPATHY PERIPHERAL [None]
  - PAIN [None]
